FAERS Safety Report 6094148-6 (Version None)
Quarter: 2009Q1

REPORT INFORMATION
  Report Type: 
  Country: None (occurrence: None)
  Receive Date: 20090226
  Receipt Date: 20090214
  Transmission Date: 20090719
  Serious: Yes (Other)
  Sender: FDA-Public Use
  Company Number: US-PFIZER INC-2009164302

PATIENT
  Age: 40 Year
  Sex: Male
  Weight: 92.971 kg

DRUGS (3)
  1. CHANTIX [Suspect]
     Indication: SMOKING CESSATION THERAPY
     Dosage: 0.5 MG, 1X/DAY
     Dates: start: 20090126
  2. TRICOR [Concomitant]
     Indication: BLOOD CHOLESTEROL
  3. TRICOR [Concomitant]
     Indication: BLOOD TRIGLYCERIDES INCREASED

REACTIONS (5)
  - ABNORMAL DREAMS [None]
  - FATIGUE [None]
  - MANIA [None]
  - SLEEP DISORDER [None]
  - STRESS [None]
